FAERS Safety Report 4462523-9 (Version None)
Quarter: 2004Q3

REPORT INFORMATION
  Report Type: 
  Country: None (occurrence: None)
  Receive Date: 20040928
  Receipt Date: 20040910
  Transmission Date: 20050211
  Serious: Yes (Hospitalization)
  Sender: FDA-Public Use
  Company Number: 2004064654

PATIENT
  Age: 64 Year
  Sex: Male

DRUGS (3)
  1. CARDYL  (ATORVASTATIN) [Suspect]
     Indication: HYPERCHOLESTEROLAEMIA
     Dosage: 10 MG (10 MG, 1 IN 1 D), ORAL
     Route: 048
     Dates: end: 20040101
  2. CLOPIDOGREL (CLOPIDOGREL) [Concomitant]
  3. ACARBOSE (ACARBOSE) [Concomitant]

REACTIONS (4)
  - COAGULOPATHY [None]
  - HEPATIC FAILURE [None]
  - HEPATITIS [None]
  - PROTHROMBIN LEVEL INCREASED [None]
